FAERS Safety Report 4625008-2 (Version None)
Quarter: 2005Q2

REPORT INFORMATION
  Report Type: 
  Country: None (occurrence: None)
  Receive Date: 20050325
  Receipt Date: 20050105
  Transmission Date: 20051028
  Serious: No
  Sender: FDA-Public Use
  Company Number: US_0501111311

PATIENT
  Age: 58 Year
  Sex: Female

DRUGS (1)
  1. FORTEO [Suspect]
     Indication: OSTEOPOROSIS
     Dosage: 20 UG

REACTIONS (4)
  - BACK PAIN [None]
  - GAIT DISTURBANCE [None]
  - NECK PAIN [None]
  - PAIN IN EXTREMITY [None]
